FAERS Safety Report 18448450 (Version 1)
Quarter: 2020Q4

REPORT INFORMATION
  Report Type: Other
  Country: CA (occurrence: CA)
  Receive Date: 20201101
  Receipt Date: 20201101
  Transmission Date: 20210114
  Serious: Yes (Other)
  Sender: FDA-Public Use
  Company Number: CA-CELLTRION INC.-2020CA029777

PATIENT

DRUGS (25)
  1. RITUXIMAB (UNKNOWN) [Suspect]
     Active Substance: RITUXIMAB
     Indication: LUPUS NEPHRITIS
     Dosage: 1000.0 MILLIGRAM, 1 EVERY 15 DAYS
     Route: 042
  2. RITUXIMAB (UNKNOWN) [Suspect]
     Active Substance: RITUXIMAB
     Indication: CRYOGLOBULINAEMIA
     Dosage: 900.0 MILLIGRAM, 1 EVERY 15 DAYS
     Route: 042
  3. ZOPICLONE [Concomitant]
     Active Substance: ZOPICLONE
  4. ACETAMINOPHEN. [Concomitant]
     Active Substance: ACETAMINOPHEN
     Dosage: 1000.0 MILLIGRAM
     Route: 048
  5. TRAMADOL. [Concomitant]
     Active Substance: TRAMADOL
  6. RITUXIMAB (UNKNOWN) [Suspect]
     Active Substance: RITUXIMAB
     Indication: VASCULITIS
     Dosage: 1000.0 MILLIGRAM, 1 EVERY 15 DAYS
     Route: 042
  7. RITUXIMAB (UNKNOWN) [Suspect]
     Active Substance: RITUXIMAB
     Dosage: 1000.0 MILLIGRAM
     Route: 042
  8. COZAAR [Suspect]
     Active Substance: LOSARTAN POTASSIUM
     Indication: HYPERTENSION
     Dosage: 100.0 MILLIGRAM, 1 EVERY 1 DAYS
     Route: 048
  9. PREDNISONE. [Suspect]
     Active Substance: PREDNISONE
     Indication: PRODUCT USED FOR UNKNOWN INDICATION
     Dosage: 10.0 MILLIGRAM
     Route: 065
  10. RAMIPRIL. [Suspect]
     Active Substance: RAMIPRIL
     Indication: HYPERTENSION
     Dosage: 10.0 MILLIGRAM, 1 EVERY 1 DAYS
     Route: 048
  11. DIPHENHYDRAMINE HYDROCHLORIDE. [Concomitant]
     Active Substance: DIPHENHYDRAMINE HYDROCHLORIDE
     Indication: PREMEDICATION
     Dosage: 50.0 MILLIGRAM
     Route: 048
  12. RITUXIMAB (UNKNOWN) [Suspect]
     Active Substance: RITUXIMAB
     Indication: SJOGREN^S SYNDROME
     Dosage: 700.0 MILLIGRAM, 1 EVERY 15 DAYS
     Route: 042
  13. SULFAMETHOXAZOLE [Suspect]
     Active Substance: SULFAMETHOXAZOLE
     Indication: PRODUCT USED FOR UNKNOWN INDICATION
     Route: 065
  14. ARANESP [Concomitant]
     Active Substance: DARBEPOETIN ALFA
     Dosage: 30.0 MICROGRAM, 2 EVERY 1 WEEKS
     Route: 065
  15. ATORVASTATIN [Concomitant]
     Active Substance: ATORVASTATIN
     Dosage: 10.0 MILLIGRAM
     Route: 065
  16. RITUXIMAB (UNKNOWN) [Suspect]
     Active Substance: RITUXIMAB
     Dosage: 750.0 MILLIGRAM, 1 EVERY 15 DAYS
     Route: 042
  17. MYCOPHENOLATE MOFETIL. [Suspect]
     Active Substance: MYCOPHENOLATE MOFETIL
     Indication: PRODUCT USED FOR UNKNOWN INDICATION
     Route: 048
  18. RAMIPRIL. [Suspect]
     Active Substance: RAMIPRIL
     Indication: HYPERTENSION
     Dosage: 10.0 MILLIGRAM, 2 EVERY 1 DAYS
     Route: 048
  19. ACETAMINOPHEN. [Concomitant]
     Active Substance: ACETAMINOPHEN
     Dosage: 650.0 MILLIGRAM
     Route: 048
  20. TRAMACET [PARACETAMOL;TRAMADOL HYDROCHLORIDE] [Concomitant]
  21. PREDNISONE. [Suspect]
     Active Substance: PREDNISONE
     Indication: PRODUCT USED FOR UNKNOWN INDICATION
     Route: 065
  22. RISEDRONATE SODIUM. [Suspect]
     Active Substance: RISEDRONATE SODIUM
     Indication: PRODUCT USED FOR UNKNOWN INDICATION
     Route: 065
  23. ACETAMINOPHEN. [Concomitant]
     Active Substance: ACETAMINOPHEN
     Indication: PREMEDICATION
     Dosage: 500.0 MILLIGRAM
     Route: 048
  24. ACETAMINOPHEN. [Concomitant]
     Active Substance: ACETAMINOPHEN
     Indication: PREMEDICATION
     Dosage: 650.0 MILLIGRAM
     Route: 048
  25. METHYLPREDNISOLONE. [Concomitant]
     Active Substance: METHYLPREDNISOLONE
     Indication: PREMEDICATION
     Dosage: 100.0 MILLIGRAM
     Route: 042

REACTIONS (29)
  - Heart rate decreased [Not Recovered/Not Resolved]
  - Sjogren^s syndrome [Not Recovered/Not Resolved]
  - Blood pressure increased [Not Recovered/Not Resolved]
  - Headache [Not Recovered/Not Resolved]
  - Fatigue [Not Recovered/Not Resolved]
  - Pain in extremity [Not Recovered/Not Resolved]
  - Palpitations [Not Recovered/Not Resolved]
  - Vomiting [Not Recovered/Not Resolved]
  - Blood pressure diastolic decreased [Not Recovered/Not Resolved]
  - Glomerular filtration rate decreased [Not Recovered/Not Resolved]
  - Lupus nephritis [Not Recovered/Not Resolved]
  - Neuropathy peripheral [Not Recovered/Not Resolved]
  - Scab [Not Recovered/Not Resolved]
  - Hypotension [Not Recovered/Not Resolved]
  - Blood immunoglobulin M decreased [Not Recovered/Not Resolved]
  - Off label use [Unknown]
  - Weight increased [Not Recovered/Not Resolved]
  - Drug ineffective [Not Recovered/Not Resolved]
  - Abdominal pain upper [Not Recovered/Not Resolved]
  - Blood creatinine increased [Not Recovered/Not Resolved]
  - Dry eye [Not Recovered/Not Resolved]
  - Dry mouth [Not Recovered/Not Resolved]
  - White blood cell count increased [Not Recovered/Not Resolved]
  - Lymphocyte count decreased [Not Recovered/Not Resolved]
  - Blood pressure diastolic abnormal [Not Recovered/Not Resolved]
  - Laboratory test abnormal [Not Recovered/Not Resolved]
  - Malaise [Not Recovered/Not Resolved]
  - Insomnia [Not Recovered/Not Resolved]
  - Rash [Not Recovered/Not Resolved]
